FAERS Safety Report 7706564-4 (Version None)
Quarter: 2011Q3

REPORT INFORMATION
  Report Type: 
  Country: None (occurrence: None)
  Receive Date: 20110824
  Receipt Date: 20110809
  Transmission Date: 20111222
  Serious: No
  Sender: FDA-Public Use
  Company Number: US-B.I. PHARMACEUTICALS,INC./RIDGEFIELD-2011-BP-19742BP

PATIENT
  Sex: Male

DRUGS (4)
  1. LISINOPRIL [Concomitant]
     Indication: HYPERTENSION
     Dosage: 5 MG
     Route: 048
  2. ZANTAC 150 [Suspect]
     Indication: DYSPEPSIA
     Dosage: 300 MG
     Route: 048
     Dates: start: 20110708, end: 20110804
  3. ACARBOSE [Concomitant]
     Indication: DIABETES MELLITUS
     Dosage: 100 MG
     Route: 048
  4. GLYBURIDE [Concomitant]
     Indication: DIABETES MELLITUS
     Dosage: 10 MG
     Route: 048

REACTIONS (1)
  - DYSPEPSIA [None]
